FAERS Safety Report 20470486 (Version 1)
Quarter: 2022Q1

REPORT INFORMATION
  Report Type: Spontaneous
  Country: IN (occurrence: IN)
  Receive Date: 20220214
  Receipt Date: 20220214
  Transmission Date: 20220423
  Serious: Yes (Death)
  Sender: FDA-Public Use
  Company Number: IN-PFIZER INC-2020301240

PATIENT
  Age: 55 Year
  Sex: Male

DRUGS (2)
  1. SUTENT [Suspect]
     Active Substance: SUNITINIB MALATE
     Indication: Metastatic renal cell carcinoma
     Dosage: 50 MG, CYCLIC (OD 2 WEEK ON AND 1 WEEK OFF)
     Route: 048
     Dates: start: 20200730
  2. SUTENT [Suspect]
     Active Substance: SUNITINIB MALATE
     Dosage: 25 MG, CYCLIC (OD 2 WEEK ON F/BY 1 WEEK OFF)
     Route: 048
     Dates: start: 20201017

REACTIONS (2)
  - Death [Fatal]
  - Dysphonia [Unknown]
